FAERS Safety Report 9928450 (Version 3)
Quarter: 2014Q1

REPORT INFORMATION
  Report Type: Report from Study
  Country: CN (occurrence: CN)
  Receive Date: 20140227
  Receipt Date: 20140324
  Transmission Date: 20141002
  Serious: Yes (Hospitalization)
  Sender: FDA-Public Use
  Company Number: CN-ASTELLAS-2014US001937

PATIENT
  Age: 55 Year
  Sex: Female

DRUGS (1)
  1. ERLOTINIB TABLET [Suspect]
     Indication: NON-SMALL CELL LUNG CANCER
     Dosage: 150 MG, UID/QD
     Route: 048
     Dates: start: 20121111

REACTIONS (7)
  - Dizziness [Unknown]
  - Chest pain [Unknown]
  - Cough [Unknown]
  - Gait disturbance [Unknown]
  - Vomiting [Unknown]
  - Diarrhoea [Unknown]
  - Back pain [Unknown]
